FAERS Safety Report 18059245 (Version 1)
Quarter: 2020Q3

REPORT INFORMATION
  Report Type: Spontaneous
  Country: DE (occurrence: DE)
  Receive Date: 20200723
  Receipt Date: 20200723
  Transmission Date: 20201103
  Serious: Yes (Other)
  Sender: FDA-Public Use
  Company Number: DE-MYLANLABS-2020M1065192

PATIENT
  Age: 38 Year
  Sex: Female
  Weight: 74.5 kg

DRUGS (5)
  1. POTASSIUM BROMIDE [Suspect]
     Active Substance: POTASSIUM BROMIDE
     Dosage: 4 DOSAGE FORM, BID, EQUIVALENTLY 6800 MG/DAY, TABLETS ADMINISTERED AS WHOLE TABLETS
  2. VALPROIC ACID. [Suspect]
     Active Substance: VALPROIC ACID
     Indication: SEVERE MYOCLONIC EPILEPSY OF INFANCY
     Dosage: UNK
  3. POTASSIUM BROMIDE [Suspect]
     Active Substance: POTASSIUM BROMIDE
     Indication: SEVERE MYOCLONIC EPILEPSY OF INFANCY
     Dosage: 4 DOSAGE FORM, BID, EQUIVALENTLY TO 6800 MG/DAY , TABLETS WERE CRUSHED
     Dates: end: 20200619
  4. POTASSIUM BROMIDE [Suspect]
     Active Substance: POTASSIUM BROMIDE
     Dosage: 3?0?3.25 TABLETS PER DAY, TABLETS ADM WHOLE TABLETS
  5. VALPROIC ACID. [Suspect]
     Active Substance: VALPROIC ACID
     Indication: SEVERE MYOCLONIC EPILEPSY OF INFANCY
     Dosage: UNK

REACTIONS (5)
  - Seizure [Recovering/Resolving]
  - Prescribed overdose [Not Recovered/Not Resolved]
  - Off label use [Not Recovered/Not Resolved]
  - Sedation [Unknown]
  - Anticonvulsant drug level decreased [Unknown]
